FAERS Safety Report 15280536 (Version 4)
Quarter: 2018Q3

REPORT INFORMATION
  Report Type: Spontaneous
  Country: CA (occurrence: CA)
  Receive Date: 20180815
  Receipt Date: 20180919
  Transmission Date: 20181010
  Serious: Yes (Other)
  Sender: FDA-Public Use
  Company Number: CA-PFIZER INC-2018324690

PATIENT
  Age: 41 Year
  Sex: Female

DRUGS (8)
  1. DILANTIN [Suspect]
     Active Substance: PHENYTOIN
     Dosage: 300 MG, DAILY
     Route: 048
  2. CIPRALEX [Concomitant]
     Active Substance: ESCITALOPRAM OXALATE
     Dosage: 10 MG, DAILY
     Route: 048
  3. PROMETRIUM [Concomitant]
     Active Substance: PROGESTERONE
     Dosage: 200 MG, DAILY
     Route: 048
  4. ELTROXIN [Concomitant]
     Active Substance: LEVOTHYROXINE
     Dosage: 160 MG, DAILY
  5. PREDNISONE. [Concomitant]
     Active Substance: PREDNISONE
     Dosage: 3 MG, DAILY
     Route: 048
  6. SYNTHROID [Concomitant]
     Active Substance: LEVOTHYROXINE SODIUM
     Dosage: 200 UG, DAILY
  7. PAXIL [Concomitant]
     Active Substance: PAROXETINE HYDROCHLORIDE
     Dosage: 20 MG, DAILY
     Route: 048
  8. ESTRING [Concomitant]
     Active Substance: ESTRADIOL
     Dosage: UNK

REACTIONS (6)
  - Fatigue [Unknown]
  - Weight increased [Unknown]
  - Asthenia [Unknown]
  - Hypopituitarism [Unknown]
  - Growth hormone deficiency [Unknown]
  - Depression [Unknown]

NARRATIVE: CASE EVENT DATE: 2017
